FAERS Safety Report 9539657 (Version 1)
Quarter: 2013Q2

REPORT INFORMATION
  Report Type: Spontaneous
  Country: US (occurrence: None)
  Receive Date: 20130510
  Receipt Date: 20130510
  Transmission Date: 20140414
  Serious: No
  Sender: FDA-Public Use
  Company Number: 2012P1020090

PATIENT
  Age: 43 Year
  Sex: Female

DRUGS (9)
  1. AMOXICILLIN [Suspect]
     Dates: start: 20120413, end: 20120413
  2. METHOTREXATE [Concomitant]
  3. LISINOPRIL [Concomitant]
  4. METOPROLOL [Concomitant]
  5. CALCIUM [Concomitant]
  6. CYANOCOBALAMIN [Concomitant]
  7. B COMPLEX [Concomitant]
  8. FOLIC ACID [Concomitant]
  9. BENLYSTA [Concomitant]

REACTIONS (1)
  - Hypersensitivity [None]
